FAERS Safety Report 8197753-6 (Version None)
Quarter: 2012Q1

REPORT INFORMATION
  Report Type: 
  Country: None (occurrence: None)
  Receive Date: 20120309
  Receipt Date: 20120227
  Transmission Date: 20120608
  Serious: Yes (Death, Life-Threatening)
  Sender: FDA-Public Use
  Company Number: GR-BRISTOL-MYERS SQUIBB COMPANY-16420069

PATIENT
  Age: 64 Year
  Sex: Male

DRUGS (2)
  1. WARFARIN SODIUM [Suspect]
  2. CORTISONE ACETATE [Suspect]

REACTIONS (3)
  - MULTI-ORGAN FAILURE [None]
  - GALLBLADDER PERFORATION [None]
  - CHOLECYSTITIS ACUTE [None]
